FAERS Safety Report 4667972-1 (Version None)
Quarter: 2005Q2

REPORT INFORMATION
  Report Type: 
  Country: None (occurrence: None)
  Receive Date: 20050520
  Receipt Date: 20050513
  Transmission Date: 20051028
  Serious: Yes (Hospitalization)
  Sender: FDA-Public Use
  Company Number: 2005UW07416

PATIENT
  Age: 66 Year
  Sex: Female
  Weight: 76 kg

DRUGS (5)
  1. IRESSA [Suspect]
     Indication: BREAST CANCER STAGE IV
     Route: 048
     Dates: start: 20041222, end: 20050503
  2. DOCETAXEL [Suspect]
     Indication: BREAST CANCER STAGE IV
     Dosage: 75 MG/M SQUARED
     Route: 042
     Dates: start: 20041211, end: 20050427
  3. HERCEPTIN [Suspect]
  4. PROTONIX [Concomitant]
     Dates: start: 20050408
  5. DECADRON [Concomitant]
     Indication: PROPHYLAXIS OF NAUSEA AND VOMITING
     Dosage: 8 MG PO BID X 3 DAYS BEGINNING ON DAY BEFORE TAXOTERE FOR PRE-MED
     Route: 048

REACTIONS (2)
  - FEBRILE NEUTROPENIA [None]
  - PNEUMONIA [None]
